FAERS Safety Report 5607088-0 (Version None)
Quarter: 2008Q1

REPORT INFORMATION
  Report Type: 
  Country: None (occurrence: None)
  Receive Date: 20080129
  Receipt Date: 20080118
  Transmission Date: 20080703
  Serious: Yes (Other)
  Sender: FDA-Public Use
  Company Number: ES-PFIZER INC-2008006058

PATIENT
  Age: 60 Year
  Sex: Female

DRUGS (3)
  1. LYRICA [Suspect]
     Indication: MAJOR DEPRESSION
     Route: 048
     Dates: start: 20071001, end: 20080101
  2. CYMBALTA [Concomitant]
  3. IDALPREM [Concomitant]

REACTIONS (1)
  - PANCYTOPENIA [None]
